FAERS Safety Report 10056979 (Version 1)
Quarter: 2014Q2

REPORT INFORMATION
  Report Type: Spontaneous
  Country: US (occurrence: US)
  Receive Date: 20140403
  Receipt Date: 20140403
  Transmission Date: 20141212
  Serious: No
  Sender: FDA-Public Use
  Company Number: US-PFIZER INC-2014094144

PATIENT
  Sex: Female

DRUGS (1)
  1. ADVIL [Suspect]
     Indication: SLEEP DISORDER
     Dosage: UNK, AS NEEDED

REACTIONS (2)
  - Drug ineffective for unapproved indication [Unknown]
  - Product quality issue [Unknown]
